FAERS Safety Report 9144211 (Version 3)
Quarter: 2013Q3

REPORT INFORMATION
  Report Type: Report from Study
  Country: US (occurrence: US)
  Receive Date: 20130306
  Receipt Date: 20130708
  Transmission Date: 20140515
  Serious: Yes (Other)
  Sender: FDA-Public Use
  Company Number: US-ELI_LILLY_AND_COMPANY-US201112007475

PATIENT
  Age: 63 Year
  Sex: Female
  Weight: 51.25 kg

DRUGS (7)
  1. TERIPARATIDE [Suspect]
     Indication: OSTEOPOROSIS
     Dosage: 20 UG, QD
     Route: 058
     Dates: start: 20111130
  2. TERIPARATIDE [Suspect]
     Dosage: 20 UG, QD
     Route: 058
  3. CALCIUM [Concomitant]
     Indication: OSTEOPOROSIS
     Dosage: 1200 MG, UNK
  4. CALCIUM [Concomitant]
     Dosage: 500 MG, UNK
  5. OSTEOCAPS [Concomitant]
  6. STRONTIUM [Concomitant]
  7. KEPRA [Concomitant]

REACTIONS (2)
  - Osteoarthritis [Recovered/Resolved]
  - Blood calcium increased [Recovered/Resolved]
